FAERS Safety Report 15247344 (Version 1)
Quarter: 2018Q4

REPORT INFORMATION
  Report Type: Spontaneous
  Country: FR (occurrence: FR)
  Receive Date: 20180807
  Receipt Date: 20180807
  Transmission Date: 20190204
  Serious: Yes (Other)
  Sender: FDA-Public Use
  Company Number: FR-CONCORDIA PHARMACEUTICALS INC.-GSH201807-002751

PATIENT
  Age: 36 Year
  Sex: Female
  Weight: 73 kg

DRUGS (3)
  1. INEXIUM [Concomitant]
     Active Substance: ESOMEPRAZOLE
  2. PLAQUENIL [Suspect]
     Active Substance: HYDROXYCHLOROQUINE SULFATE
     Indication: SYSTEMIC LUPUS ERYTHEMATOSUS
     Route: 048
     Dates: start: 20180430, end: 20180507
  3. PREVISCAN (FLUINDIONE) [Suspect]
     Active Substance: FLUINDIONE
     Indication: DEEP VEIN THROMBOSIS
     Route: 048
     Dates: start: 201510, end: 20180507

REACTIONS (1)
  - Hepatitis [Recovered/Resolved]

NARRATIVE: CASE EVENT DATE: 20180502
